FAERS Safety Report 17961590 (Version 2)
Quarter: 2021Q3

REPORT INFORMATION
  Report Type: Spontaneous
  Country: CA (occurrence: CA)
  Receive Date: 20200630
  Receipt Date: 20210802
  Transmission Date: 20211014
  Serious: Yes (Congenital Anomaly)
  Sender: FDA-Public Use
  Company Number: NVSC2020CA182279

PATIENT
  Age: 38 Year
  Sex: Female

DRUGS (3)
  1. MONTELUKAST ^SANDOZ^ [Suspect]
     Active Substance: MONTELUKAST SODIUM
     Indication: ASTHMA
     Dosage: 10 MG (1 EVERY 1 DAYS)
     Route: 048
  2. CITALOPRAM [Suspect]
     Active Substance: CITALOPRAM HYDROBROMIDE
     Indication: DEPRESSION
     Dosage: 10 MG (EVERY 1 1 DAYS)
     Route: 048
  3. ESCITALOPRAM  SANDOZ [Suspect]
     Active Substance: ESCITALOPRAM OXALATE
     Indication: DEPRESSION
     Dosage: 20 MG (1 EVERY 1 DAYS)
     Route: 048

REACTIONS (1)
  - Fallot^s tetralogy [Unknown]
